FAERS Safety Report 9584338 (Version 1)
Quarter: 2013Q4

REPORT INFORMATION
  Report Type: Spontaneous
  Country: US (occurrence: US)
  Receive Date: 20131002
  Receipt Date: 20131002
  Transmission Date: 20140711
  Serious: No
  Sender: FDA-Public Use
  Company Number: US-AMGEN-USASP2013052793

PATIENT
  Age: 74 Year
  Sex: Female

DRUGS (16)
  1. ENBREL [Suspect]
     Indication: PRODUCT USED FOR UNKNOWN INDICATION
     Dosage: 50 MG, QWK
     Route: 058
  2. FOLIC ACID [Concomitant]
     Dosage: 1 MG, UNK
  3. FLAXSEED OIL [Concomitant]
     Dosage: 1000 MG, UNK
  4. SIMVASTATIN [Concomitant]
     Dosage: 40 MG, UNK
  5. BYSTOLIC [Concomitant]
     Dosage: 5 MG, UNK
  6. OMEPRAZOLE [Concomitant]
     Dosage: 10 MG, UNK
  7. BONIVA [Concomitant]
     Dosage: 2.5 MG, UNK
  8. ASA [Concomitant]
     Dosage: LOW DOSE, 81 MG EC
  9. BENADRYL A [Concomitant]
     Dosage: 25 MG, UNK
  10. MULTIVITAMINS, PLAIN [Concomitant]
     Dosage: UNK
  11. VITAMIN D                          /00107901/ [Concomitant]
     Dosage: 50000 UNIT, UNK
  12. FISH OIL [Concomitant]
     Dosage: UNK
  13. CALCIUM +D                         /00944201/ [Concomitant]
     Dosage: UNK
  14. GLUCOSAMINE [Concomitant]
     Dosage: UNK
  15. VITAMIN C                          /00008001/ [Concomitant]
     Dosage: 500 MG, CR UNK
  16. CHONDROITIN [Concomitant]
     Dosage: UNK

REACTIONS (1)
  - Infection [Unknown]
